FAERS Safety Report 19503062 (Version 3)
Quarter: 2021Q3

REPORT INFORMATION
  Report Type: Report from Study
  Country: KR (occurrence: KR)
  Receive Date: 20210707
  Receipt Date: 20210713
  Transmission Date: 20211014
  Serious: Yes (Hospitalization, Other)
  Sender: FDA-Public Use
  Company Number: KR-PFIZER INC-2021810545

PATIENT
  Age: 39 Year
  Sex: Female
  Weight: 62.7 kg

DRUGS (2)
  1. TALZENNA [Suspect]
     Active Substance: TALAZOPARIB TOSYLATE
     Indication: BREAST CANCER METASTATIC
     Dosage: 1 MG, 1X/DAY
     Route: 048
     Dates: start: 20210615, end: 20210629
  2. IRCODON [Concomitant]
     Active Substance: OXYCODONE HYDROCHLORIDE
     Indication: PAIN
     Dosage: 5 MG, AS NEEDED (PRN)
     Route: 048
     Dates: start: 20210616

REACTIONS (6)
  - Septic shock [Unknown]
  - Asthenia [Unknown]
  - Hypovolaemic shock [Recovered/Resolved]
  - Petechiae [Unknown]
  - Blood bilirubin increased [Unknown]
  - Blood creatinine increased [Unknown]

NARRATIVE: CASE EVENT DATE: 20210627
